FAERS Safety Report 5002475-6 (Version None)
Quarter: 2006Q2

REPORT INFORMATION
  Report Type: 
  Country: None (occurrence: None)
  Receive Date: 20060515
  Receipt Date: 20050125
  Transmission Date: 20061013
  Serious: Yes (Hospitalization)
  Sender: FDA-Public Use
  Company Number: US-MERCK-0501USA03968

PATIENT
  Age: 67 Year
  Sex: Male
  Weight: 73 kg

DRUGS (10)
  1. VIOXX [Suspect]
     Indication: OSTEOARTHRITIS
     Route: 048
     Dates: start: 20021213, end: 20030101
  2. ASPIRIN [Concomitant]
     Route: 065
     Dates: start: 20020101
  3. LIPITOR [Concomitant]
     Route: 065
     Dates: start: 19900101
  4. ADVIL [Concomitant]
     Route: 065
     Dates: start: 19900101
  5. PLAVIX [Concomitant]
     Route: 065
     Dates: start: 20020101
  6. ZOCOR [Concomitant]
     Route: 065
  7. LOPID [Concomitant]
     Route: 065
  8. ULTRACET [Concomitant]
     Route: 065
  9. PROTONIX [Concomitant]
     Route: 065
  10. WELLBUTRIN [Concomitant]
     Route: 065

REACTIONS (11)
  - ACUTE MYOCARDIAL INFARCTION [None]
  - ANGINA UNSTABLE [None]
  - BACK PAIN [None]
  - CEREBROVASCULAR ACCIDENT [None]
  - CORONARY ARTERY DISEASE [None]
  - DIZZINESS [None]
  - MUSCULAR WEAKNESS [None]
  - NASAL SEPTUM DEVIATION [None]
  - NECK PAIN [None]
  - TRANSIENT ISCHAEMIC ATTACK [None]
  - VERTIGO [None]
